FAERS Safety Report 7469058-X (Version None)
Quarter: 2011Q2

REPORT INFORMATION
  Report Type: 
  Country: None (occurrence: None)
  Receive Date: 20110429
  Receipt Date: 20110419
  Transmission Date: 20111010
  Serious: Yes (Other)
  Sender: FDA-Public Use
  Company Number: THQ2011A01978

PATIENT
  Age: 58 Year
  Sex: Male

DRUGS (2)
  1. LANSOPRAZOLE [Suspect]
     Indication: BARRETT'S OESOPHAGUS
     Dosage: 30 MG (30 MG, 1 IN 1 D) PER ORAL
     Route: 048
     Dates: start: 20091005
  2. (DUTASTERIDE) (DUTASTERIDE) [Concomitant]

REACTIONS (6)
  - TINNITUS [None]
  - VISION BLURRED [None]
  - ALANINE AMINOTRANSFERASE INCREASED [None]
  - MUSCULOSKELETAL PAIN [None]
  - RETINAL DISORDER [None]
  - ARTHRALGIA [None]
